FAERS Safety Report 24424166 (Version 1)
Quarter: 2024Q4

REPORT INFORMATION
  Report Type: Spontaneous
  Country: US (occurrence: US)
  Receive Date: 20241010
  Receipt Date: 20241010
  Transmission Date: 20250115
  Serious: No
  Sender: PFIZER
  Company Number: US-PFIZER INC-PV202400130786

PATIENT
  Age: 54 Year
  Sex: Female

DRUGS (3)
  1. IBRANCE [Suspect]
     Active Substance: PALBOCICLIB
     Dosage: 125 MG
  2. IBRANCE [Suspect]
     Active Substance: PALBOCICLIB
     Dosage: 100 MG
  3. EXEMESTANE [Concomitant]
     Active Substance: EXEMESTANE
     Dosage: UNK
     Dates: start: 202409

REACTIONS (6)
  - Migraine [Unknown]
  - Arthralgia [Unknown]
  - Alopecia [Unknown]
  - Insomnia [Unknown]
  - White blood cell count decreased [Recovering/Resolving]
  - Neutrophil count decreased [Recovering/Resolving]

NARRATIVE: CASE EVENT DATE: 20241006
